FAERS Safety Report 17102064 (Version 1)
Quarter: 2019Q4

REPORT INFORMATION
  Report Type: Spontaneous
  Country: US (occurrence: US)
  Receive Date: 20191202
  Receipt Date: 20191202
  Transmission Date: 20200122
  Serious: No
  Sender: FDA-Public Use
  Company Number: US-GE HEALTHCARE LIFE SCIENCES-2019CSU001709

PATIENT
  Age: 41 Year
  Sex: Male
  Weight: 113 kg

DRUGS (3)
  1. OMNIPAQUE [Suspect]
     Active Substance: IOHEXOL
     Indication: SCAN WITH CONTRAST
     Dosage: UNK, SINGLE
     Route: 065
     Dates: start: 20190307, end: 20190307
  2. OMNIPAQUE [Suspect]
     Active Substance: IOHEXOL
     Indication: SPINAL OSTEOARTHRITIS
  3. OMNIPAQUE [Suspect]
     Active Substance: IOHEXOL
     Indication: ARTHROPATHY

REACTIONS (2)
  - Drug ineffective [Recovered/Resolved]
  - No adverse event [Recovered/Resolved]

NARRATIVE: CASE EVENT DATE: 20190307
